FAERS Safety Report 12270198 (Version 2)
Quarter: 2016Q2

REPORT INFORMATION
  Report Type: Report from Study
  Country: NL (occurrence: NL)
  Receive Date: 20160415
  Receipt Date: 20160606
  Transmission Date: 20160815
  Serious: Yes (Death, Hospitalization)
  Sender: FDA-Public Use
  Company Number: US-ASTRAZENECA-2016SE39635

PATIENT
  Sex: Female
  Weight: 71 kg

DRUGS (8)
  1. SYNAGIS [Suspect]
     Active Substance: PALIVIZUMAB
     Indication: HEART DISEASE CONGENITAL
     Dosage: 115.0MG UNKNOWN
     Route: 030
     Dates: start: 20151224, end: 20151224
  2. SYNAGIS [Suspect]
     Active Substance: PALIVIZUMAB
     Indication: HEART DISEASE CONGENITAL
     Dosage: 119.0MG UNKNOWN
     Route: 030
     Dates: start: 20160121, end: 20160121
  3. SYNAGIS [Suspect]
     Active Substance: PALIVIZUMAB
     Indication: HEART DISEASE CONGENITAL
     Dosage: 110.0MG UNKNOWN
     Route: 030
     Dates: start: 20150903, end: 20150903
  4. SYNAGIS [Suspect]
     Active Substance: PALIVIZUMAB
     Indication: HEART DISEASE CONGENITAL
     Dosage: 116.0MG UNKNOWN
     Route: 030
     Dates: start: 20151001, end: 20151001
  5. SYNAGIS [Suspect]
     Active Substance: PALIVIZUMAB
     Indication: HEART DISEASE CONGENITAL
     Dosage: 116.0MG UNKNOWN
     Route: 030
     Dates: start: 20151029, end: 20151029
  6. SYNAGIS [Suspect]
     Active Substance: PALIVIZUMAB
     Indication: HEART DISEASE CONGENITAL
     Dosage: 117.0MG UNKNOWN
     Route: 030
     Dates: start: 20151125, end: 20151125
  7. SYNAGIS [Suspect]
     Active Substance: PALIVIZUMAB
     Indication: HEART DISEASE CONGENITAL
     Dosage: 122.0MG UNKNOWN
     Route: 030
     Dates: start: 20160218, end: 20160218
  8. SYNAGIS [Suspect]
     Active Substance: PALIVIZUMAB
     Indication: HEART DISEASE CONGENITAL
     Dosage: 128.0MG UNKNOWN
     Route: 030
     Dates: start: 20160317, end: 20160317

REACTIONS (2)
  - Pulmonary haemorrhage [Fatal]
  - Septic shock [Unknown]
